FAERS Safety Report 5244130-3 (Version None)
Quarter: 2007Q1

REPORT INFORMATION
  Report Type: 
  Country: None (occurrence: None)
  Receive Date: 20061201
  Receipt Date: 20060818
  Transmission Date: 20070707
  Serious: No
  Sender: FDA-Public Use
  Company Number: 2006PV019682

PATIENT
  Sex: Female

DRUGS (3)
  1. BYETTA [Suspect]
     Dosage: 5 MCG; BID; SC
     Route: 058
     Dates: start: 20060601
  2. METFORMIN [Concomitant]
  3. AVANDIA [Concomitant]

REACTIONS (3)
  - CONDITION AGGRAVATED [None]
  - FUNGAL SKIN INFECTION [None]
  - INJECTION SITE RASH [None]
